FAERS Safety Report 6436583-X (Version None)
Quarter: 2009Q4

REPORT INFORMATION
  Report Type: 
  Country: None (occurrence: None)
  Receive Date: 20091111
  Receipt Date: 20091028
  Transmission Date: 20100525
  Serious: Yes (Other)
  Sender: FDA-Public Use
  Company Number: DE-GENENTECH-293642

PATIENT
  Sex: Female

DRUGS (1)
  1. AVASTIN [Suspect]
     Indication: COLORECTAL CANCER METASTATIC
     Dosage: UNK
     Route: 065
     Dates: start: 20080901, end: 20080901

REACTIONS (2)
  - OESOPHAGEAL VARICES HAEMORRHAGE [None]
  - VARICES OESOPHAGEAL [None]
